FAERS Safety Report 7136008-5 (Version None)
Quarter: 2010Q4

REPORT INFORMATION
  Report Type: 
  Country: None (occurrence: None)
  Receive Date: 20101204
  Receipt Date: 20101119
  Transmission Date: 20110411
  Serious: Yes (Life-Threatening)
  Sender: FDA-Public Use
  Company Number: IT-BAYER-201047935GPV

PATIENT

DRUGS (2)
  1. ENDOPROST [Suspect]
     Indication: SYSTEMIC SCLEROSIS
     Dates: start: 20101113, end: 20101113
  2. ACETYLSALICYLIC ACID [Concomitant]
     Route: 048

REACTIONS (9)
  - CHEST PAIN [None]
  - CHILLS [None]
  - CYANOSIS [None]
  - DYSPNOEA [None]
  - HYPERHIDROSIS [None]
  - NAUSEA [None]
  - PALPITATIONS [None]
  - PULSE ABNORMAL [None]
  - TREMOR [None]
